FAERS Safety Report 7420318-8 (Version None)
Quarter: 2011Q2

REPORT INFORMATION
  Report Type: 
  Country: None (occurrence: None)
  Receive Date: 20110418
  Receipt Date: 20110408
  Transmission Date: 20111010
  Serious: Yes (Hospitalization, Other)
  Sender: FDA-Public Use
  Company Number: PHHY2011US30444

PATIENT
  Sex: Female

DRUGS (2)
  1. MYFORTIC [Suspect]
     Dosage: 4 X DAY
  2. NEORAL [Suspect]
     Dosage: 4 X DAY

REACTIONS (4)
  - LOSS OF CONSCIOUSNESS [None]
  - UPPER LIMB FRACTURE [None]
  - CLAVICLE FRACTURE [None]
  - INFLUENZA [None]
